FAERS Safety Report 7660292-2 (Version None)
Quarter: 2011Q3

REPORT INFORMATION
  Report Type: 
  Country: None (occurrence: None)
  Receive Date: 20110805
  Receipt Date: 20110727
  Transmission Date: 20111222
  Serious: Yes (Other)
  Sender: FDA-Public Use
  Company Number: PHHY2011AU68086

PATIENT
  Sex: Male

DRUGS (2)
  1. GILENYA [Suspect]
     Indication: RELAPSING-REMITTING MULTIPLE SCLEROSIS
     Dosage: UNK UKN, OT
  2. STREPTOCOCCUS FAECALIS [Concomitant]
     Dosage: UNK UKN, OT

REACTIONS (2)
  - LYMPHOCYTE COUNT DECREASED [None]
  - CELLULITIS STREPTOCOCCAL [None]
